FAERS Safety Report 7310983-8 (Version None)
Quarter: 2011Q1

REPORT INFORMATION
  Report Type: 
  Country: None (occurrence: None)
  Receive Date: 20110224
  Receipt Date: 20110217
  Transmission Date: 20110831
  Serious: Yes (Death, Life-Threatening, Hospitalization, Disabling, Other)
  Sender: FDA-Public Use
  Company Number: DE-JNJFOC-20100300921

PATIENT
  Sex: Male
  Weight: 93 kg

DRUGS (14)
  1. YONDELIS [Suspect]
     Dosage: 3MG, CYCLE 2
     Route: 042
  2. LIPROLOG [Concomitant]
     Indication: DIABETES MELLITUS
     Route: 058
  3. CODIOVAN [Concomitant]
     Indication: HYPERTENSION
     Route: 048
  4. SIMVASTATIN [Concomitant]
     Indication: HYPERCHOLESTEROLAEMIA
     Route: 048
  5. YONDELIS [Suspect]
     Dosage: 3MG, CYCLE 3
     Route: 042
  6. METOPROLOL [Concomitant]
     Indication: HYPERTENSION
     Route: 048
  7. DOXORUBICIN [Suspect]
     Indication: CHEMOTHERAPY
     Route: 042
  8. LEVOTHYROXINE SODIUM [Concomitant]
     Indication: HYPOTHYROIDISM
     Route: 048
  9. YONDELIS [Suspect]
     Indication: SARCOMA
     Dosage: 3MG, CYCLE 1
     Route: 042
  10. YONDELIS [Suspect]
     Dosage: 3MG, CYCLE 4
     Route: 042
  11. ASPIRIN [Concomitant]
     Indication: PLATELET AGGREGATION INHIBITION
     Route: 048
  12. YONDELIS [Suspect]
     Dosage: 3MG, CYCLE 5
     Route: 042
  13. TORSEMIDE [Concomitant]
     Indication: OEDEMA DUE TO CARDIAC DISEASE
     Route: 048
  14. CALCIUM CARBONATE [Concomitant]
     Indication: BLOOD CALCIUM DECREASED
     Route: 048

REACTIONS (2)
  - CARDIAC FAILURE [None]
  - ACUTE MYOCARDIAL INFARCTION [None]
